FAERS Safety Report 4949382-2 (Version None)
Quarter: 2006Q1

REPORT INFORMATION
  Report Type: 
  Country: None (occurrence: None)
  Receive Date: 20060321
  Receipt Date: 20051228
  Transmission Date: 20060701
  Serious: Yes (Hospitalization, Other)
  Sender: FDA-Public Use
  Company Number: US-BRISTOL-MYERS SQUIBB COMPANY-13231063

PATIENT
  Sex: Female

DRUGS (4)
  1. ABATACEPT [Suspect]
     Indication: RHEUMATOID ARTHRITIS
     Route: 042
     Dates: start: 20051122
  2. METHOTREXATE [Suspect]
     Dates: start: 20051019, end: 20051213
  3. PREDNISONE TAB [Concomitant]
     Dates: start: 19980101
  4. FOLIC ACID [Concomitant]

REACTIONS (2)
  - MOUTH ULCERATION [None]
  - WHITE BLOOD CELL COUNT DECREASED [None]
